FAERS Safety Report 4309796-0 (Version None)
Quarter: 2004Q1

REPORT INFORMATION
  Report Type: 
  Country: None (occurrence: None)
  Receive Date: 20040301
  Receipt Date: 20040217
  Transmission Date: 20041129
  Serious: Yes (Other)
  Sender: FDA-Public Use
  Company Number: SUSI-2004-00094

PATIENT
  Sex: Female

DRUGS (3)
  1. PROAMATINE [Suspect]
     Dosage: 15 MG, ONE TIME
     Dates: start: 20030501
  2. DONNATAL (ATROPINE SULFATE, HYOSCINE HYDROBROMIDE, HYOCYAMINE SULFATE) [Concomitant]
  3. PHENOBARBITAL TAB [Concomitant]

REACTIONS (1)
  - BLINDNESS TRANSIENT [None]
